FAERS Safety Report 10089228 (Version 1)
Quarter: 2014Q2

REPORT INFORMATION
  Report Type: Spontaneous
  Country: US (occurrence: None)
  Receive Date: 20140418
  Receipt Date: 20140418
  Transmission Date: 20141212
  Serious: Yes (Disabling)
  Sender: FDA-Public Use
  Company Number: None

PATIENT
  Age: 32 Year
  Sex: Female
  Weight: 69.85 kg

DRUGS (1)
  1. MOXIFLOXACIN [Suspect]
     Indication: SINUSITIS
     Dosage: 10 PILLS ONCE DAILY TAKEN BY MOUTH
     Route: 048
     Dates: start: 20140403, end: 20140412

REACTIONS (15)
  - Nausea [None]
  - Vomiting [None]
  - Headache [None]
  - Palpitations [None]
  - Oropharyngeal pain [None]
  - Purulence [None]
  - Oral disorder [None]
  - Blood glucose decreased [None]
  - Paraesthesia [None]
  - Burning sensation [None]
  - Feeling abnormal [None]
  - Aphagia [None]
  - Mental impairment [None]
  - Slow response to stimuli [None]
  - Head discomfort [None]
